FAERS Safety Report 8426099-3 (Version None)
Quarter: 2012Q2

REPORT INFORMATION
  Report Type: 
  Country: None (occurrence: None)
  Receive Date: 20120611
  Receipt Date: 20120604
  Transmission Date: 20120825
  Serious: Yes (Hospitalization, Other)
  Sender: FDA-Public Use
  Company Number: US-ELI_LILLY_AND_COMPANY-US201103007252

PATIENT
  Sex: Female

DRUGS (4)
  1. FORTEO [Suspect]
     Dosage: 20 UG, QD
     Dates: end: 20110601
  2. FORTEO [Suspect]
     Indication: OSTEOPOROSIS
     Dosage: 20 UG, QD
     Dates: start: 20110308
  3. FORTEO [Suspect]
     Dosage: 20 UG, QD
     Dates: start: 20110601
  4. FORTEO [Suspect]
     Dosage: 20 UG, QD
     Dates: start: 20110601

REACTIONS (13)
  - OSTEOARTHRITIS [None]
  - INSOMNIA [None]
  - ARTHRALGIA [None]
  - DYSPEPSIA [None]
  - MUSCLE SPASMS [None]
  - MUSCLE DISORDER [None]
  - HOSPITALISATION [None]
  - ARTHRITIS [None]
  - DISCOMFORT [None]
  - INJECTION SITE MASS [None]
  - SURGERY [None]
  - MYALGIA [None]
  - MALAISE [None]
